FAERS Safety Report 8101731-2 (Version None)
Quarter: 2012Q1

REPORT INFORMATION
  Report Type: 
  Country: None (occurrence: None)
  Receive Date: 20120131
  Receipt Date: 20120123
  Transmission Date: 20120608
  Serious: Yes (Other)
  Sender: FDA-Public Use
  Company Number: PHHY2011MX112290

PATIENT
  Sex: Male

DRUGS (2)
  1. TEGRETOL [Suspect]
     Indication: EPILEPSY
     Dosage: 2 TABLETS PER DAY
     Dates: start: 20090301
  2. TEGRETOL [Suspect]
     Dosage: 3 DF, UNK
     Dates: start: 20100814

REACTIONS (5)
  - CONVULSION [None]
  - FATIGUE [None]
  - PETIT MAL EPILEPSY [None]
  - SLEEP DISORDER [None]
  - STRESS [None]
